FAERS Safety Report 10683761 (Version 1)
Quarter: 2014Q4

REPORT INFORMATION
  Report Type: Spontaneous
  Country: US (occurrence: US)
  Receive Date: 20141230
  Receipt Date: 20141230
  Transmission Date: 20150529
  Serious: No
  Sender: FDA-Public Use
  Company Number: US-PFIZER INC-2014358582

PATIENT
  Age: 45 Year
  Sex: Male
  Weight: 77 kg

DRUGS (6)
  1. NEURONTIN [Suspect]
     Active Substance: GABAPENTIN
     Indication: BURNING SENSATION
  2. DIPHENAMINE [Concomitant]
     Indication: PAIN
     Dosage: UNK
     Dates: end: 2014
  3. NEURONTIN [Suspect]
     Active Substance: GABAPENTIN
     Indication: NEURALGIA
     Dosage: 300 MG, 2X/DAY
     Route: 048
     Dates: end: 201412
  4. NEURONTIN [Suspect]
     Active Substance: GABAPENTIN
     Indication: HYPOAESTHESIA
  5. LYRICA [Suspect]
     Active Substance: PREGABALIN
     Indication: NEURALGIA
     Dosage: 100 MG, 2X/DAY
     Route: 048
     Dates: start: 201412, end: 201412
  6. TRAMADOL [Concomitant]
     Active Substance: TRAMADOL
     Indication: PAIN
     Dosage: UNK
     Dates: end: 2014

REACTIONS (4)
  - Burning sensation [Recovering/Resolving]
  - Hypoaesthesia [Recovering/Resolving]
  - Neuralgia [Recovering/Resolving]
  - Back pain [Recovered/Resolved]
